FAERS Safety Report 23454443 (Version 1)
Quarter: 2024Q1

REPORT INFORMATION
  Report Type: Spontaneous
  Country: US (occurrence: US)
  Receive Date: 20240130
  Receipt Date: 20240130
  Transmission Date: 20240410
  Serious: No
  Sender: FDA-Public Use
  Company Number: US-OPELLA-2024OHG002527

PATIENT
  Sex: Male

DRUGS (1)
  1. SELSUN BLUE NATURALS ITCHY, DRY SCALP [Suspect]
     Active Substance: SALICYLIC ACID
     Indication: Product used for unknown indication

REACTIONS (1)
  - Burning sensation [Unknown]
